FAERS Safety Report 18724543 (Version 1)
Quarter: 2021Q1

REPORT INFORMATION
  Report Type: Spontaneous
  Country: US (occurrence: US)
  Receive Date: 20210108
  Receipt Date: 20210108
  Transmission Date: 20210419
  Serious: Yes (Life-Threatening, Hospitalization)
  Sender: FDA-Public Use
  Company Number: None

PATIENT
  Age: 75 Year
  Sex: Male
  Weight: 60 kg

DRUGS (1)
  1. PACLITAXEL (PACLITAXEL 300MG/50ML INJ, VIL, 50ML) [Suspect]
     Active Substance: PACLITAXEL
     Indication: PULMONARY FIBROSIS
     Route: 042
     Dates: start: 20201208, end: 20201229

REACTIONS (7)
  - Respiratory depression [None]
  - Flushing [None]
  - Hypotension [None]
  - Infusion related reaction [None]
  - Unresponsive to stimuli [None]
  - Palpitations [None]
  - Chest pain [None]

NARRATIVE: CASE EVENT DATE: 20201229
